FAERS Safety Report 6448191-5 (Version None)
Quarter: 2009Q4

REPORT INFORMATION
  Report Type: 
  Country: None (occurrence: None)
  Receive Date: 20091120
  Receipt Date: 20090824
  Transmission Date: 20100525
  Serious: No
  Sender: FDA-Public Use
  Company Number: US-BAYER-200930807NA

PATIENT
  Age: 29 Year
  Sex: Male

DRUGS (1)
  1. MAGNEVIST PHARMACY BULK PACK [Suspect]
     Indication: NUCLEAR MAGNETIC RESONANCE IMAGING BRAIN
     Dosage: TOTAL DAILY DOSE: 13 ML
     Route: 042

REACTIONS (1)
  - VISION BLURRED [None]
